FAERS Safety Report 8553594-9 (Version None)
Quarter: 2012Q3

REPORT INFORMATION
  Report Type: 
  Country: None (occurrence: None)
  Receive Date: 20120719
  Receipt Date: 20120713
  Transmission Date: 20120928
  Serious: Yes (Hospitalization)
  Sender: FDA-Public Use
  Company Number: 2012032872

PATIENT
  Age: 16 Year
  Sex: Male
  Weight: 121.1104 kg

DRUGS (5)
  1. EPIPEN [Concomitant]
  2. DIPHENHYDRAMINE HCL [Concomitant]
  3. NORMAL SALINE (SOIDUM CHLORIDE) [Concomitant]
  4. SODIUM CHLORIDE/NORMAL SALINE (SODIUM CHLORIDE) [Concomitant]
  5. BERINERT [Suspect]
     Indication: HEREDITARY ANGIOEDEMA
     Dosage: 2500 IU, 4 ML/MINUTE, INTRAVENOUS
     Route: 042
     Dates: end: 20120713

REACTIONS (1)
  - TOOTH DISORDER [None]
